FAERS Safety Report 8341478-0 (Version None)
Quarter: 2012Q2

REPORT INFORMATION
  Report Type: 
  Country: None (occurrence: None)
  Receive Date: 20120507
  Receipt Date: 20120426
  Transmission Date: 20120825
  Serious: Yes (Other)
  Sender: FDA-Public Use
  Company Number: US-ELI_LILLY_AND_COMPANY-US201204009939

PATIENT
  Age: 38 Year
  Sex: Male

DRUGS (3)
  1. ANGIOMAX [Concomitant]
     Dosage: UNK
     Dates: start: 20120401, end: 20120401
  2. HEPARIN [Concomitant]
     Dosage: UNK
     Dates: start: 20120401, end: 20120401
  3. EFFIENT [Suspect]
     Dosage: 60 MG, LOADING DOSE
     Dates: start: 20120401, end: 20120401

REACTIONS (1)
  - CEREBROVASCULAR ACCIDENT [None]
